FAERS Safety Report 17489456 (Version 1)
Quarter: 2020Q1

REPORT INFORMATION
  Report Type: Spontaneous
  Country: US (occurrence: US)
  Receive Date: 20200303
  Receipt Date: 20200303
  Transmission Date: 20200409
  Serious: Yes (Hospitalization)
  Sender: FDA-Public Use
  Company Number: None

PATIENT
  Age: 37 Year
  Sex: Female
  Weight: 81 kg

DRUGS (1)
  1. CLARITHROMYCIN. [Suspect]
     Active Substance: CLARITHROMYCIN
     Indication: PNEUMONIA
     Dosage: ?          QUANTITY:20 TABLET(S);?
     Route: 048
     Dates: start: 20181221, end: 20181230

REACTIONS (17)
  - Discomfort [None]
  - Dizziness [None]
  - Feeling abnormal [None]
  - Blood pressure increased [None]
  - Nervousness [None]
  - Negative thoughts [None]
  - Panic attack [None]
  - Agitation [None]
  - Depersonalisation/derealisation disorder [None]
  - Morbid thoughts [None]
  - Adverse drug reaction [None]
  - Fear [None]
  - Anxiety [None]
  - Mania [None]
  - Staring [None]
  - Disturbance in attention [None]
  - Dyspnoea [None]

NARRATIVE: CASE EVENT DATE: 20190102
